FAERS Safety Report 8489390-0 (Version None)
Quarter: 2012Q3

REPORT INFORMATION
  Report Type: 
  Country: None (occurrence: None)
  Receive Date: 20120705
  Receipt Date: 20120627
  Transmission Date: 20120928
  Serious: Yes (Hospitalization)
  Sender: FDA-Public Use
  Company Number: US-BRISTOL-MYERS SQUIBB COMPANY-16722696

PATIENT
  Age: 78 Year
  Sex: Female

DRUGS (15)
  1. ALBUTEROL [Concomitant]
     Route: 055
  2. DEXTROSE [Concomitant]
     Dosage: FREQUENCY: UD
     Route: 042
  3. HUMULIN R [Concomitant]
     Dosage: INJECATBLE
  4. CIPROFLOXACIN HYDROCHLORIDE [Concomitant]
     Dosage: CIPROFLOXACIN IN DSW
     Route: 042
  5. SODIUM CHLORIDE [Concomitant]
     Route: 042
  6. ERLOTINIB HYDROCHLORIDE [Suspect]
     Indication: NON-SMALL CELL LUNG CANCER
     Route: 048
     Dates: start: 20120504, end: 20120625
  7. ATORVASTATIN CALCIUM [Concomitant]
     Route: 048
  8. DIPHENOXYLATE HCL + ATROPINE SULFATE [Concomitant]
     Dosage: 1 DF:1 TAB Q4H
     Route: 048
  9. LEVALBUTEROL TARTRATE [Concomitant]
     Route: 055
  10. BENZONATATE [Concomitant]
     Dosage: PRN
     Route: 048
  11. DASATINIB [Suspect]
     Indication: NON-SMALL CELL LUNG CANCER
     Dosage: DASATINIB 50 MG;1H55827, 20 MG;1L62806.
     Route: 048
     Dates: start: 20120504, end: 20120625
  12. GEMFIBROZIL [Concomitant]
     Route: 048
  13. LEVOTHYROXINE SODIUM [Concomitant]
     Route: 048
  14. LOSARTAN POTASSIUM [Concomitant]
     Route: 048
  15. ONDANSETRON [Concomitant]
     Dosage: EVERY 8TH HOUR ROUTE: MOUTHCHEEKS

REACTIONS (2)
  - MENTAL STATUS CHANGES [None]
  - HYPONATRAEMIA [None]
